FAERS Safety Report 7183407-1 (Version None)
Quarter: 2010Q4

REPORT INFORMATION
  Report Type: 
  Country: None (occurrence: None)
  Receive Date: 20101220
  Receipt Date: 20101220
  Transmission Date: 20110411
  Serious: Yes (Hospitalization)
  Sender: FDA-Public Use
  Company Number: None

PATIENT
  Age: 54 Year
  Sex: Female
  Weight: 76.3 kg

DRUGS (5)
  1. BC POWDER [Suspect]
     Indication: PAIN
     Dosage: 1 PKT DAILY PO CHRONIC
     Route: 048
  2. ETODOLAC [Suspect]
     Indication: PAIN
     Dosage: 500MG BID PO CHRONIC
     Route: 048
  3. ZIAC [Concomitant]
  4. RANITIDINE [Concomitant]
  5. COMBIVENT [Concomitant]

REACTIONS (5)
  - ABDOMINAL DISCOMFORT [None]
  - ABDOMINAL DISTENSION [None]
  - GASTRIC ULCER [None]
  - GASTROINTESTINAL HAEMORRHAGE [None]
  - LARGE INTESTINAL ULCER [None]
